FAERS Safety Report 9766811 (Version 1)
Quarter: 2013Q4

REPORT INFORMATION
  Report Type: Spontaneous
  Country: US (occurrence: US)
  Receive Date: 20131217
  Receipt Date: 20131217
  Transmission Date: 20140711
  Serious: No
  Sender: FDA-Public Use
  Company Number: US-BIOGENIDEC-2013BI119724

PATIENT
  Sex: Male

DRUGS (1)
  1. TECFIDERA [Suspect]
     Indication: MULTIPLE SCLEROSIS
     Route: 048

REACTIONS (5)
  - Back pain [Recovered/Resolved]
  - Pain in extremity [Unknown]
  - Muscle tightness [Unknown]
  - Abdominal pain [Recovered/Resolved]
  - Flushing [Recovered/Resolved]
